FAERS Safety Report 18837176 (Version 1)
Quarter: 2021Q1

REPORT INFORMATION
  Report Type: Spontaneous
  Country: US (occurrence: US)
  Receive Date: 20210203
  Receipt Date: 20210203
  Transmission Date: 20210419
  Serious: No
  Sender: FDA-Public Use
  Company Number: US-ALLERGAN-2024361US

PATIENT
  Age: 70 Year
  Sex: Male

DRUGS (3)
  1. BOTOX [Suspect]
     Active Substance: ONABOTULINUMTOXINA
     Dosage: UNK, SINGLE
     Dates: start: 20200115, end: 20200115
  2. BOTOX [Suspect]
     Active Substance: ONABOTULINUMTOXINA
     Indication: MIGRAINE
     Dosage: UNK, SINGLE
     Dates: start: 201910, end: 201910
  3. BOTOX [Suspect]
     Active Substance: ONABOTULINUMTOXINA
     Dosage: UNK, SINGLE
     Dates: start: 20200408, end: 20200408

REACTIONS (2)
  - Throat tightness [Recovered/Resolved]
  - Hypoaesthesia [Recovered/Resolved]

NARRATIVE: CASE EVENT DATE: 20200408
